FAERS Safety Report 4836859-3 (Version None)
Quarter: 2005Q4

REPORT INFORMATION
  Report Type: 
  Country: None (occurrence: None)
  Receive Date: 20051123
  Receipt Date: 20051004
  Transmission Date: 20060501
  Serious: Yes (Death, Hospitalization, Other)
  Sender: FDA-Public Use
  Company Number: US-MERCK-0510USA03100

PATIENT
  Age: 88 Year
  Sex: Male
  Weight: 104 kg

DRUGS (5)
  1. VIOXX [Suspect]
     Route: 048
     Dates: start: 20030530, end: 20040313
  2. VIOXX [Suspect]
     Route: 048
     Dates: end: 20030530
  3. NORVASC [Concomitant]
     Route: 065
  4. MECLIZINE [Concomitant]
     Route: 065
  5. LIPITOR [Concomitant]
     Route: 065

REACTIONS (14)
  - ARTERIOSCLEROSIS CORONARY ARTERY [None]
  - AZOTAEMIA [None]
  - CARDIAC FAILURE CONGESTIVE [None]
  - CARDIAC VALVE DISEASE [None]
  - CEREBROVASCULAR ACCIDENT [None]
  - DEATH [None]
  - DEHYDRATION [None]
  - HYPERCHOLESTEROLAEMIA [None]
  - HYPERTENSION [None]
  - ORAL INTAKE REDUCED [None]
  - RENAL FAILURE ACUTE [None]
  - RESPIRATORY ARREST [None]
  - URINARY INCONTINENCE [None]
  - URINARY TRACT INFECTION [None]
